FAERS Safety Report 18061006 (Version 5)
Quarter: 2022Q1

REPORT INFORMATION
  Report Type: Spontaneous
  Country: US (occurrence: US)
  Receive Date: 20200723
  Receipt Date: 20220213
  Transmission Date: 20220423
  Serious: No
  Sender: FDA-Public Use
  Company Number: US-HORIZON-ACT-0280-2020

PATIENT
  Age: 45 Year
  Sex: Male

DRUGS (5)
  1. ACTIMMUNE [Suspect]
     Active Substance: INTERFERON GAMMA-1B
     Indication: Chronic granulomatous disease
     Dosage: 100 UG
     Route: 065
     Dates: start: 20200131
  2. ACTIMMUNE [Suspect]
     Active Substance: INTERFERON GAMMA-1B
     Indication: Neutrophil function disorder
     Dosage: 100 ?G TIW 3 SEPARATED DOSES
     Route: 058
     Dates: start: 20200201
  3. VITRAKVI [Concomitant]
     Active Substance: LAROTRECTINIB
  4. PHENERGAN [Concomitant]
     Active Substance: PROMETHAZINE HYDROCHLORIDE
     Indication: Nausea
  5. AZITHROMYCIN [Concomitant]
     Active Substance: AZITHROMYCIN
     Dosage: UNK
     Route: 042

REACTIONS (8)
  - Asthenia [Unknown]
  - Pyrexia [Not Recovered/Not Resolved]
  - Influenza like illness [Not Recovered/Not Resolved]
  - Nausea [Recovered/Resolved]
  - Chills [Not Recovered/Not Resolved]
  - Drug interaction [Unknown]
  - Off label use [Not Recovered/Not Resolved]
  - Off label use [Unknown]

NARRATIVE: CASE EVENT DATE: 20201017
